FAERS Safety Report 19145202 (Version 1)
Quarter: 2021Q2

REPORT INFORMATION
  Report Type: Report from Study
  Country: DE (occurrence: DE)
  Receive Date: 20210416
  Receipt Date: 20210416
  Transmission Date: 20210717
  Serious: Yes (Other)
  Sender: FDA-Public Use
  Company Number: DE-PFIZER INC-2021400200

PATIENT
  Age: 34 Year
  Sex: Male

DRUGS (15)
  1. COCAINE [Suspect]
     Active Substance: COCAINE
     Dosage: UNK
  2. METHYLECGONINE [Suspect]
     Active Substance: ECGONINE METHYL ESTER
     Dosage: UNK
  3. LORAZEPAM. [Suspect]
     Active Substance: LORAZEPAM
     Dosage: UNK
  4. MORPHINE [Suspect]
     Active Substance: MORPHINE
     Dosage: UNK
  5. DIAZEPAM. [Suspect]
     Active Substance: DIAZEPAM
     Dosage: UNK
  6. 8?TETRAHYDROCANNABINOL [Suspect]
     Active Substance: .DELTA.8-TETRAHYDROCANNABINOL
     Dosage: UNK
  7. PREGABALIN. [Suspect]
     Active Substance: PREGABALIN
     Dosage: UNK
  8. ALPRAZOLAM. [Suspect]
     Active Substance: ALPRAZOLAM
     Dosage: UNK
  9. TEMAZEPAM. [Suspect]
     Active Substance: TEMAZEPAM
     Dosage: UNK
  10. CODEINE [Suspect]
     Active Substance: CODEINE
     Dosage: UNK
  11. MIRTAZAPINE. [Suspect]
     Active Substance: MIRTAZAPINE
     Dosage: UNK
  12. OXAZEPAM. [Suspect]
     Active Substance: OXAZEPAM
     Dosage: UNK
  13. SERTRALINE HCL [Suspect]
     Active Substance: SERTRALINE HYDROCHLORIDE
     Dosage: UNK
  14. LEVOMETHADONE [Suspect]
     Active Substance: LEVOMETHADONE
     Dosage: UNK
  15. NORDAZEPAM [Suspect]
     Active Substance: NORDAZEPAM
     Dosage: UNK

REACTIONS (6)
  - Vestibular disorder [Unknown]
  - Dysarthria [Unknown]
  - Bradykinesia [Unknown]
  - Restlessness [Unknown]
  - Substance abuse [Unknown]
  - Gait disturbance [Unknown]
